FAERS Safety Report 4320209-5 (Version None)
Quarter: 2004Q1

REPORT INFORMATION
  Report Type: 
  Country: None (occurrence: None)
  Receive Date: 20040317
  Receipt Date: 20040304
  Transmission Date: 20041129
  Serious: Yes (Other)
  Sender: FDA-Public Use
  Company Number: 2004014650

PATIENT
  Age: 19 Year
  Sex: Female

DRUGS (2)
  1. ATARAX [Suspect]
     Indication: PREMEDICATION
     Dosage: 100 MG (ONE TABLET), ORAL
     Route: 048
     Dates: start: 20030101, end: 20030101
  2. CIMETIDINE [Suspect]
     Indication: PREMEDICATION
     Dosage: (ONE TABLET) ORAL
     Route: 048
     Dates: start: 20030101, end: 20030101

REACTIONS (1)
  - ANGIONEUROTIC OEDEMA [None]
